FAERS Safety Report 6527135-1 (Version None)
Quarter: 2010Q1

REPORT INFORMATION
  Report Type: 
  Country: None (occurrence: None)
  Receive Date: 20100105
  Receipt Date: 20091228
  Transmission Date: 20100710
  Serious: Yes (Hospitalization, Other)
  Sender: FDA-Public Use
  Company Number: US-ELI_LILLY_AND_COMPANY-US200912005781

PATIENT
  Sex: Male

DRUGS (3)
  1. HUMALOG [Suspect]
     Indication: DIABETES MELLITUS
     Dosage: UNK, AS NEEDED
  2. HUMALOG [Suspect]
     Dosage: UNK, AS NEEDED
  3. LEVEMIR [Concomitant]

REACTIONS (10)
  - BLOOD GLUCOSE DECREASED [None]
  - BLOOD GLUCOSE INCREASED [None]
  - CORONARY ARTERY BYPASS [None]
  - DYSSTASIA [None]
  - FEELING ABNORMAL [None]
  - HYPERHIDROSIS [None]
  - HYPOGLYCAEMIA UNAWARENESS [None]
  - HYPOGLYCAEMIC UNCONSCIOUSNESS [None]
  - SHOCK HYPOGLYCAEMIC [None]
  - VISUAL IMPAIRMENT [None]
